FAERS Safety Report 18316124 (Version 3)
Quarter: 2020Q4

REPORT INFORMATION
  Report Type: Spontaneous
  Country: DE (occurrence: DE)
  Receive Date: 20200927
  Receipt Date: 20201028
  Transmission Date: 20210113
  Serious: Yes (Hospitalization)
  Sender: FDA-Public Use
  Company Number: DE-JNJFOC-20200926808

PATIENT
  Age: 81 Year
  Sex: Male

DRUGS (2)
  1. CETIRIZINE HYDROCHLORIDE. [Suspect]
     Active Substance: CETIRIZINE HYDROCHLORIDE
     Indication: ACARODERMATITIS
     Route: 065
     Dates: start: 2017
  2. CLOBETASOL [Suspect]
     Active Substance: CLOBETASOL
     Indication: ACARODERMATITIS
     Route: 065
     Dates: start: 2017

REACTIONS (3)
  - Product use in unapproved indication [Unknown]
  - Off label use [Unknown]
  - Acarodermatitis [Unknown]

NARRATIVE: CASE EVENT DATE: 2017
